FAERS Safety Report 13991484 (Version 1)
Quarter: 2017Q3

REPORT INFORMATION
  Report Type: Report from Study
  Country: CZ (occurrence: CZ)
  Receive Date: 20170920
  Receipt Date: 20170920
  Transmission Date: 20171128
  Serious: Yes (Other)
  Sender: FDA-Public Use
  Company Number: CZ-JNJFOC-20170917672

PATIENT
  Age: 42 Year
  Sex: Female

DRUGS (2)
  1. SIMPONI [Suspect]
     Active Substance: GOLIMUMAB
     Indication: PSORIATIC ARTHROPATHY
     Route: 058
     Dates: start: 20131009
  2. KLACID [Concomitant]
     Active Substance: CLARITHROMYCIN
     Route: 065

REACTIONS (2)
  - Tuberculosis [Unknown]
  - Borrelia infection [Recovered/Resolved]

NARRATIVE: CASE EVENT DATE: 2017
